FAERS Safety Report 15678256 (Version 1)
Quarter: 2018Q4

REPORT INFORMATION
  Report Type: Spontaneous
  Country: IT (occurrence: IT)
  Receive Date: 20181201
  Receipt Date: 20181201
  Transmission Date: 20190205
  Serious: Yes (Hospitalization)
  Sender: FDA-Public Use
  Company Number: IT-UCBSA-2018052366

PATIENT
  Age: 1 Year
  Sex: Male
  Weight: 10 kg

DRUGS (3)
  1. VIMPAT [Suspect]
     Active Substance: LACOSAMIDE
     Indication: EPILEPTIC ENCEPHALOPATHY
     Dosage: 150 MG DAILY DOSE
     Route: 048
     Dates: start: 20180101, end: 20181009
  2. MOGADON [Suspect]
     Active Substance: NITRAZEPAM
     Indication: EPILEPSY
     Dosage: 4 MG DAILY DOSE
     Route: 048
     Dates: start: 20180101, end: 20181009
  3. GARDENALE [Suspect]
     Active Substance: PHENOBARBITAL
     Indication: EPILEPTIC ENCEPHALOPATHY
     Dosage: 70 MG DAILY DOSE
     Route: 048
     Dates: start: 20180101, end: 20181009

REACTIONS (4)
  - Cyanosis [Unknown]
  - Hypotonia [Unknown]
  - Seizure [Unknown]
  - Drug ineffective [Unknown]

NARRATIVE: CASE EVENT DATE: 20181009
